FAERS Safety Report 5343219-8 (Version None)
Quarter: 2007Q2

REPORT INFORMATION
  Report Type: 
  Country: None (occurrence: None)
  Receive Date: 20070416
  Receipt Date: 20070203
  Transmission Date: 20071010
  Serious: No
  Sender: FDA-Public Use
  Company Number: 2007SP000391

PATIENT
  Age: 56 Year
  Sex: Female
  Weight: 70.3075 kg

DRUGS (7)
  1. LUNESTA [Suspect]
     Indication: INSOMNIA
     Dosage: PRN;ORAL
     Route: 048
  2. BACLOFEN [Concomitant]
  3. NEURONTIN [Concomitant]
  4. HYDROCODIN [Concomitant]
  5. MORPHINE [Concomitant]
  6. LEVOXYL [Concomitant]
  7. ADVIL [Concomitant]

REACTIONS (1)
  - DYSGEUSIA [None]
